FAERS Safety Report 12880359 (Version 9)
Quarter: 2017Q3

REPORT INFORMATION
  Report Type: Spontaneous
  Country: US (occurrence: US)
  Receive Date: 20161025
  Receipt Date: 20170811
  Transmission Date: 20171127
  Serious: Yes (Death, Hospitalization, Other)
  Sender: FDA-Public Use
  Company Number: US-PFIZER INC-2016445745

PATIENT
  Age: 74 Year
  Sex: Male
  Weight: 77.9 kg

DRUGS (9)
  1. SIMVASTATIN. [Concomitant]
     Active Substance: SIMVASTATIN
     Dosage: UNK
  2. VITAMIN D [Concomitant]
     Active Substance: CHOLECALCIFEROL
     Dosage: 1000 IU, DAILY
     Route: 048
  3. VASOTEC [Concomitant]
     Active Substance: ENALAPRIL MALEATE
     Dosage: UNK
  4. BIOTIN [Concomitant]
     Active Substance: BIOTIN
     Dosage: UNK
  5. SUTENT [Suspect]
     Active Substance: SUNITINIB MALATE
     Indication: METASTATIC RENAL CELL CARCINOMA
     Dosage: 37.5 MG, DAILY
     Route: 048
     Dates: start: 20160927
  6. SUTENT [Suspect]
     Active Substance: SUNITINIB MALATE
     Dosage: 37.5 MG, DAILY
     Route: 048
     Dates: start: 20160927
  7. SUTENT [Suspect]
     Active Substance: SUNITINIB MALATE
     Dosage: 37.5 MG, 1X/DAY [QHS]
     Route: 048
  8. COQ10 [Concomitant]
     Active Substance: UBIDECARENONE
     Dosage: 100 MG, 1X/DAY (HS)
     Route: 048
  9. HYDROCHLOROTHIAZIDE. [Concomitant]
     Active Substance: HYDROCHLOROTHIAZIDE
     Dosage: UNK

REACTIONS (18)
  - Dysgeusia [Recovering/Resolving]
  - Cardiac arrest [Fatal]
  - Hepatic enzyme increased [Unknown]
  - Depression [Unknown]
  - Cough [Not Recovered/Not Resolved]
  - Dyspnoea exertional [Recovering/Resolving]
  - Decreased appetite [Recovering/Resolving]
  - Rash [Unknown]
  - Weight decreased [Recovering/Resolving]
  - Pneumonia [Unknown]
  - Condition aggravated [Recovering/Resolving]
  - Pleural effusion [Unknown]
  - Asthenia [Unknown]
  - Pulmonary thrombosis [Recovering/Resolving]
  - Fatigue [Unknown]
  - Nasopharyngitis [Unknown]
  - Weight increased [Unknown]
  - Diarrhoea [Recovering/Resolving]

NARRATIVE: CASE EVENT DATE: 2016
